FAERS Safety Report 7203883-5 (Version None)
Quarter: 2010Q4

REPORT INFORMATION
  Report Type: 
  Country: None (occurrence: None)
  Receive Date: 20101230
  Receipt Date: 20101223
  Transmission Date: 20110411
  Serious: Yes (Hospitalization)
  Sender: FDA-Public Use
  Company Number: US-B.I. PHARMACEUTICALS,INC./RIDGEFIELD-2010-BP-14959BP

PATIENT
  Sex: Male

DRUGS (10)
  1. FLOMAX [Suspect]
     Route: 048
     Dates: start: 20080101
  2. PLACEBO [Suspect]
     Indication: PROSTATE CANCER
     Route: 048
     Dates: start: 20100714
  3. DASATINIB [Suspect]
     Indication: PROSTATE CANCER
     Dosage: 100 MG
     Route: 048
     Dates: start: 20100714
  4. TAXOTERE [Suspect]
     Indication: PROSTATE CANCER
     Route: 042
     Dates: start: 20100713, end: 20100803
  5. PREDNISONE [Suspect]
     Indication: PROSTATE CANCER
     Dosage: 10 MG
     Route: 048
     Dates: start: 20100713
  6. DEXAMETHASONE [Suspect]
     Indication: PROSTATE CANCER
     Route: 042
     Dates: start: 20100713, end: 20100803
  7. ASPIRIN [Concomitant]
     Dates: start: 20050101
  8. LEVOTHYROXINE [Concomitant]
     Dates: start: 20050101
  9. LOVAZA [Concomitant]
     Dates: start: 20070101
  10. PLAVIX [Concomitant]
     Dates: start: 20060101

REACTIONS (2)
  - OEDEMA [None]
  - OEDEMA PERIPHERAL [None]
